FAERS Safety Report 9536068 (Version 1)
Quarter: 2013Q3

REPORT INFORMATION
  Report Type: Spontaneous
  Country: US (occurrence: US)
  Receive Date: 20130919
  Receipt Date: 20130919
  Transmission Date: 20140515
  Serious: No
  Sender: FDA-Public Use
  Company Number: US-BAYER-2013-112972

PATIENT
  Age: 52 Year
  Sex: Female

DRUGS (8)
  1. BETASERON [Suspect]
     Dosage: 0.25 ML, QOD
  2. BETASERON [Suspect]
     Dosage: 0.5 ML, QOD
  3. BETASERON [Suspect]
     Dosage: 0.75 ML, QOD
  4. BETASERON [Suspect]
     Dosage: 1 ML, QOD
  5. LISINOPRIL [Concomitant]
     Dosage: 2.5 MG, UNK
  6. IRON [Concomitant]
  7. POTASSIUM [Concomitant]
     Dosage: 75 MG, UNK
  8. ALEVE TABLET [Concomitant]

REACTIONS (2)
  - Paraesthesia [None]
  - Injection site rash [None]
